FAERS Safety Report 10351583 (Version 1)
Quarter: 2014Q3

REPORT INFORMATION
  Report Type: Spontaneous
  Country: CH (occurrence: CH)
  Receive Date: 20140730
  Receipt Date: 20140730
  Transmission Date: 20150326
  Serious: Yes (Other)
  Sender: FDA-Public Use
  Company Number: CH-ASTRAZENECA-2014SE54426

PATIENT
  Age: 55 Year
  Sex: Female

DRUGS (9)
  1. BELOC ZOK [Suspect]
     Active Substance: METOPROLOL SUCCINATE
     Indication: CARDIAC FUNCTION DISTURBANCE POSTOPERATIVE
     Route: 048
     Dates: start: 201406
  2. NOVALGIN [Suspect]
     Active Substance: METAMIZOLE SODIUM
     Indication: POSTOPERATIVE ANALGESIA
     Route: 048
     Dates: start: 20140616
  3. AMLODIPINE [Concomitant]
     Active Substance: AMLODIPINE BESYLATE
  4. KLACID [Suspect]
     Active Substance: CLARITHROMYCIN
     Indication: ANTIBIOTIC PROPHYLAXIS
     Route: 048
     Dates: start: 20140616, end: 20140617
  5. PANTOZOL [Concomitant]
     Active Substance: PANTOPRAZOLE SODIUM
     Route: 048
  6. AUGMENTIN [Suspect]
     Active Substance: AMOXICILLIN\CLAVULANATE POTASSIUM
     Indication: ANTIBIOTIC PROPHYLAXIS
     Dosage: 125/875 MG 1 G TWO TIMES A DAY
     Route: 048
     Dates: start: 20140616, end: 20140626
  7. SIMVASTATIN STREULI [Concomitant]
  8. CLEXANE [Suspect]
     Active Substance: ENOXAPARIN SODIUM
     Indication: THROMBOSIS PROPHYLAXIS
     Dosage: 100 MG/ML 40 MG DAILY
     Route: 058
     Dates: start: 20140617, end: 20140701
  9. DAFALGAN [Concomitant]
     Active Substance: ACETAMINOPHEN
     Route: 048

REACTIONS (3)
  - Application site rash [Unknown]
  - Skin burning sensation [Unknown]
  - Rash macular [Unknown]

NARRATIVE: CASE EVENT DATE: 20140629
